FAERS Safety Report 7965167-7 (Version None)
Quarter: 2011Q4

REPORT INFORMATION
  Report Type: 
  Country: None (occurrence: None)
  Receive Date: 20111208
  Receipt Date: 20111125
  Transmission Date: 20120403
  Serious: No
  Sender: FDA-Public Use
  Company Number: US-BAYER-2011-114575

PATIENT
  Age: 21 Month
  Sex: Male
  Weight: 14 kg

DRUGS (1)
  1. ALEVE (CAPLET) [Suspect]
     Dosage: UNK, ONCE
     Route: 048
     Dates: start: 20111125

REACTIONS (1)
  - NO ADVERSE EVENT [None]
